FAERS Safety Report 18195872 (Version 1)
Quarter: 2020Q3

REPORT INFORMATION
  Report Type: Spontaneous
  Country: NL (occurrence: NL)
  Receive Date: 20200826
  Receipt Date: 20200826
  Transmission Date: 20201103
  Serious: Yes (Other)
  Sender: FDA-Public Use
  Company Number: NL-TEVA-2020-NL-1819570

PATIENT
  Age: 30 Year
  Sex: Male
  Weight: 105 kg

DRUGS (2)
  1. OLANZAPINE TABLET 2,5MG / BRAND NAME NOT SPECIFIED [Suspect]
     Active Substance: OLANZAPINE
     Indication: RESTLESSNESS
     Dosage: 2.5 MILLIGRAM DAILY;  THERAPY END DATE: ASKED BUT UNKNOWN
     Dates: start: 20050601
  2. OMEPRAZOL CAPSULE MSR 20MG / BPH MAAGZUURREMMENDE CAPS OMEPRAZOL CAPS [Concomitant]
     Dosage: 40 MILLIGRAM DAILY;  THERAPY START DATE AND END DATE: ASKED BUT UNKNOWN

REACTIONS (3)
  - Weight increased [Recovering/Resolving]
  - Diabetes mellitus [Recovering/Resolving]
  - Blood triglycerides increased [Recovering/Resolving]

NARRATIVE: CASE EVENT DATE: 20080605
